FAERS Safety Report 15744034 (Version 2)
Quarter: 2018Q4

REPORT INFORMATION
  Report Type: Report from Study
  Country: US (occurrence: US)
  Receive Date: 20181220
  Receipt Date: 20181224
  Transmission Date: 20190205
  Serious: Yes (Other)
  Sender: FDA-Public Use
  Company Number: US-ROCHE-2228216

PATIENT
  Sex: Female

DRUGS (1)
  1. OCREVUS [Suspect]
     Active Substance: OCRELIZUMAB
     Indication: RELAPSING MULTIPLE SCLEROSIS
     Dosage: NO
     Route: 065
     Dates: start: 20180727

REACTIONS (3)
  - Impaired healing [Not Recovered/Not Resolved]
  - Cystitis [Unknown]
  - Lymphoedema [Not Recovered/Not Resolved]
